FAERS Safety Report 14176002 (Version 1)
Quarter: 2017Q4

REPORT INFORMATION
  Report Type: Spontaneous
  Country: US (occurrence: None)
  Receive Date: 20171109
  Receipt Date: 20171109
  Transmission Date: 20180321
  Serious: No
  Sender: FDA-Public Use
  Company Number: None

PATIENT
  Sex: Female
  Weight: 59.42 kg

DRUGS (1)
  1. OTREXUP [Suspect]
     Active Substance: METHOTREXATE
     Indication: RHEUMATOID ARTHRITIS
     Dosage: 15 MG (0.4ML) QWEEKLY SUBQ
     Route: 058
     Dates: start: 201704

REACTIONS (4)
  - Dizziness [None]
  - Vision blurred [None]
  - Abdominal pain upper [None]
  - Nausea [None]
